FAERS Safety Report 4791324-7 (Version None)
Quarter: 2005Q4

REPORT INFORMATION
  Report Type: 
  Country: None (occurrence: None)
  Receive Date: 20051007
  Receipt Date: 20050928
  Transmission Date: 20060501
  Serious: Yes (Other)
  Sender: FDA-Public Use
  Company Number: NL-JNJFOC-20050906600

PATIENT
  Sex: Female
  Weight: 50 kg

DRUGS (11)
  1. INFLIXIMAB [Suspect]
     Route: 042
  2. INFLIXIMAB [Suspect]
     Route: 042
  3. INFLIXIMAB [Suspect]
     Route: 042
  4. INFLIXIMAB [Suspect]
     Route: 042
  5. INFLIXIMAB [Suspect]
     Route: 042
  6. INFLIXIMAB [Suspect]
     Route: 042
  7. INFLIXIMAB [Suspect]
     Route: 042
  8. INFLIXIMAB [Suspect]
     Route: 042
  9. INFLIXIMAB [Suspect]
     Indication: CROHN'S DISEASE
     Route: 042
  10. LOPERAMIDE [Concomitant]
     Indication: CROHN'S DISEASE
     Route: 065
  11. AZATHIOPRINE [Concomitant]
     Indication: CROHN'S DISEASE
     Route: 065

REACTIONS (1)
  - VULVAL CANCER STAGE 0 [None]
